FAERS Safety Report 5743297-8 (Version None)
Quarter: 2008Q2

REPORT INFORMATION
  Report Type: 
  Country: None (occurrence: None)
  Receive Date: 20080519
  Receipt Date: 20080508
  Transmission Date: 20081010
  Serious: Yes (Hospitalization)
  Sender: FDA-Public Use
  Company Number: US-PFIZER INC-2008019016

PATIENT
  Sex: Female
  Weight: 64.9 kg

DRUGS (8)
  1. SUNITINIB [Suspect]
     Indication: BREAST CANCER METASTATIC
     Route: 048
     Dates: start: 20080208, end: 20080228
  2. CADUET [Concomitant]
     Route: 048
  3. METOPROLOL TARTRATE [Concomitant]
     Route: 048
     Dates: start: 20041015
  4. ISOSORBIDE DINITRATE [Concomitant]
     Route: 048
     Dates: start: 20020831
  5. ACETYLSALICYLIC ACID SRT [Concomitant]
     Route: 048
     Dates: start: 20020807
  6. POTASSIUM CHLORIDE [Concomitant]
     Route: 048
     Dates: start: 20080205
  7. PROMETHAZINE [Concomitant]
     Route: 048
     Dates: start: 20080218, end: 20080219
  8. ZOFRAN [Concomitant]
     Route: 048
     Dates: start: 20080216

REACTIONS (1)
  - SYNCOPE [None]
